FAERS Safety Report 5208386-5 (Version None)
Quarter: 2006Q4

REPORT INFORMATION
  Report Type: 
  Country: None (occurrence: None)
  Receive Date: 20061026
  Receipt Date: 20060802
  Transmission Date: 20070319
  Serious: No
  Sender: FDA-Public Use
  Company Number: 2006095725

PATIENT
  Sex: Female

DRUGS (1)
  1. LYRICA [Suspect]
     Indication: HERPES ZOSTER
     Dosage: 225 MG (75 MG,3 IN 1 D)
     Dates: start: 20060801

REACTIONS (2)
  - DRUG INEFFECTIVE [None]
  - URINE FLOW DECREASED [None]
